FAERS Safety Report 18948468 (Version 1)
Quarter: 2021Q1

REPORT INFORMATION
  Report Type: Spontaneous
  Country: US (occurrence: US)
  Receive Date: 20210226
  Receipt Date: 20210226
  Transmission Date: 20210420
  Serious: No
  Sender: FDA-Public Use
  Company Number: US-ROCHE-2550039

PATIENT
  Sex: Female

DRUGS (5)
  1. GLYBURIDE. [Concomitant]
     Active Substance: GLYBURIDE
  2. PREDNISONE. [Concomitant]
     Active Substance: PREDNISONE
  3. XOLAIR [Suspect]
     Active Substance: OMALIZUMAB
     Indication: PRODUCT USED FOR UNKNOWN INDICATION
     Route: 065
     Dates: start: 20200130
  4. JANUVIA [Concomitant]
     Active Substance: SITAGLIPTIN PHOSPHATE
  5. AMARYL [Concomitant]
     Active Substance: GLIMEPIRIDE

REACTIONS (6)
  - Pain [Unknown]
  - Dyspnoea [Unknown]
  - Pyrexia [Unknown]
  - Injection site pain [Unknown]
  - Contusion [Unknown]
  - Blood glucose increased [Unknown]
